FAERS Safety Report 7997240-1 (Version None)
Quarter: 2011Q4

REPORT INFORMATION
  Report Type: 
  Country: None (occurrence: None)
  Receive Date: 20111221
  Receipt Date: 20111207
  Transmission Date: 20120403
  Serious: Yes (Death, Other)
  Sender: FDA-Public Use
  Company Number: JP-SANOFI-AVENTIS-2011SA080704

PATIENT
  Age: 67 Year
  Sex: Male
  Weight: 71 kg

DRUGS (3)
  1. TAXOTERE [Suspect]
     Dosage: 87 MG
     Route: 065
     Dates: start: 20111020
  2. AVASTIN [Suspect]
     Indication: NON-SMALL CELL LUNG CANCER
     Route: 065
     Dates: start: 20110421, end: 20111020
  3. TAXOTERE [Suspect]
     Indication: NON-SMALL CELL LUNG CANCER
     Dosage: 107 MG
     Route: 065
     Dates: start: 20110928

REACTIONS (2)
  - INTERSTITIAL LUNG DISEASE [None]
  - INTESTINAL PERFORATION [None]
